FAERS Safety Report 7491604-0 (Version None)
Quarter: 2011Q2

REPORT INFORMATION
  Report Type: 
  Country: None (occurrence: None)
  Receive Date: 20110519
  Receipt Date: 20110516
  Transmission Date: 20111010
  Serious: Yes (Other)
  Sender: FDA-Public Use
  Company Number: MY-PFIZER INC-2011105898

PATIENT
  Age: 56 Year
  Sex: Female

DRUGS (8)
  1. CALCIUM LACTATE [Concomitant]
  2. AMLODIPINE [Concomitant]
  3. SIMVASTATIN [Concomitant]
  4. GALENIC /HYDROCHLOROTHIAZIDE/IRBESARTAN/ [Concomitant]
  5. MINIPRESS [Suspect]
     Indication: HYPERTENSION
     Dosage: 2 MG, 1X/DAY
     Route: 048
     Dates: start: 20091230
  6. ASPIRIN [Concomitant]
  7. METFORMIN [Concomitant]
  8. INSULIN [Concomitant]

REACTIONS (3)
  - SOMNOLENCE [None]
  - LETHARGY [None]
  - TACHYCARDIA [None]
